FAERS Safety Report 12571424 (Version 1)
Quarter: 2016Q3

REPORT INFORMATION
  Report Type: Spontaneous
  Country: GB (occurrence: GB)
  Receive Date: 20160719
  Receipt Date: 20160719
  Transmission Date: 20161109
  Serious: Yes (Other)
  Sender: FDA-Public Use
  Company Number: GB-APOTEX-2016AP009914

PATIENT

DRUGS (3)
  1. PAROXETINE. [Suspect]
     Active Substance: PAROXETINE
     Indication: DEPRESSION
     Dosage: UNK
     Route: 065
     Dates: start: 19991008, end: 20010430
  2. PAXIL [Suspect]
     Active Substance: PAROXETINE HYDROCHLORIDE
     Dosage: DOSE REDUCED
     Dates: start: 20010522
  3. PAXIL [Suspect]
     Active Substance: PAROXETINE HYDROCHLORIDE
     Indication: DEPRESSION
     Dosage: UNK

REACTIONS (39)
  - Suicidal ideation [Unknown]
  - Nausea [Unknown]
  - Dizziness [Unknown]
  - Crying [Unknown]
  - Weight increased [Unknown]
  - Tremor [Unknown]
  - Dyspnoea [Unknown]
  - Depression [Unknown]
  - Drug withdrawal syndrome [Unknown]
  - Emotional disorder [Unknown]
  - Neuropathy peripheral [Unknown]
  - Autoimmune thyroiditis [Unknown]
  - Fatigue [Unknown]
  - Psychomotor hyperactivity [Unknown]
  - Coordination abnormal [Unknown]
  - Arthralgia [Unknown]
  - Anxiety [Unknown]
  - Pharyngeal oedema [Unknown]
  - Hyperhidrosis [Unknown]
  - Myalgia [Unknown]
  - Suffocation feeling [Unknown]
  - Cough [Unknown]
  - Orthostatic hypotension [Unknown]
  - Body temperature fluctuation [Unknown]
  - Pain [Unknown]
  - Hyperthyroidism [Unknown]
  - Hypomania [Unknown]
  - Influenza like illness [Unknown]
  - Insomnia [Unknown]
  - Confusional state [Unknown]
  - Tinnitus [Unknown]
  - Sleep disorder [Unknown]
  - Arrhythmia [Unknown]
  - Sensory disturbance [Unknown]
  - Dysphagia [Unknown]
  - Aggression [Unknown]
  - Agitation [Unknown]
  - Diarrhoea [Unknown]
  - Goitre [Unknown]

NARRATIVE: CASE EVENT DATE: 2001
